FAERS Safety Report 5647115-8 (Version None)
Quarter: 2008Q1

REPORT INFORMATION
  Report Type: 
  Country: None (occurrence: None)
  Receive Date: 20080228
  Receipt Date: 20080228
  Transmission Date: 20080703
  Serious: Yes (Disabling)
  Sender: FDA-Public Use
  Company Number: None

PATIENT
  Age: 23 Year
  Sex: Male

DRUGS (1)
  1. CREST PRO HEALTH MOUTHWASH [Suspect]
     Dates: start: 20080225, end: 20080227

REACTIONS (1)
  - AGEUSIA [None]
